FAERS Safety Report 11270608 (Version 1)
Quarter: 2015Q3

REPORT INFORMATION
  Report Type: Report from Study
  Country: JP (occurrence: JP)
  Receive Date: 20150714
  Receipt Date: 20150714
  Transmission Date: 20151125
  Serious: Yes (Death, Hospitalization, Other)
  Sender: FDA-Public Use
  Company Number: PHHO2009JP04167

PATIENT
  Age: 59 Year
  Sex: Male
  Weight: 50 kg

DRUGS (10)
  1. DIGOXIN. [Concomitant]
     Active Substance: DIGOXIN
     Indication: PRODUCT USED FOR UNKNOWN INDICATION
     Dosage: UNK
     Route: 065
  2. ARTIST [Concomitant]
     Active Substance: CARVEDILOL
     Indication: PRODUCT USED FOR UNKNOWN INDICATION
     Route: 065
  3. ICL670A [Suspect]
     Active Substance: DEFERASIROX
     Indication: APLASTIC ANAEMIA
     Dosage: 1500 MG, QD
     Route: 048
     Dates: start: 20090330, end: 20090420
  4. BASEN [Concomitant]
     Active Substance: VOGLIBOSE
     Indication: PRODUCT USED FOR UNKNOWN INDICATION
     Dosage: UNK
     Route: 065
  5. ANTIBIOTICS [Concomitant]
     Active Substance: UNSPECIFIED INGREDIENT
     Indication: PRODUCT USED FOR UNKNOWN INDICATION
     Route: 065
  6. ICL670A [Suspect]
     Active Substance: DEFERASIROX
     Indication: HAEMOSIDEROSIS
     Dosage: 1125 MG, QD
     Route: 048
     Dates: start: 20080421, end: 20080811
  7. ICL670A [Suspect]
     Active Substance: DEFERASIROX
     Indication: IRON OVERLOAD
     Dosage: 1625 MG, QD
     Route: 048
     Dates: start: 20080812, end: 20090317
  8. SUNRYTHM [Concomitant]
     Active Substance: PILSICAINIDE HYDROCHLORIDE
     Indication: PRODUCT USED FOR UNKNOWN INDICATION
     Dosage: UNK
     Route: 065
  9. AMARYL [Concomitant]
     Active Substance: GLIMEPIRIDE
     Indication: PRODUCT USED FOR UNKNOWN INDICATION
     Route: 065
  10. ACTOS [Concomitant]
     Active Substance: PIOGLITAZONE HYDROCHLORIDE
     Indication: PRODUCT USED FOR UNKNOWN INDICATION
     Dosage: UNK
     Route: 065

REACTIONS (34)
  - Oxygen saturation decreased [Fatal]
  - Productive cough [Fatal]
  - Respiratory distress [Fatal]
  - Subarachnoid haemorrhage [Recovered/Resolved]
  - Tenderness [Not Recovered/Not Resolved]
  - Pneumonia [Fatal]
  - Blood pressure decreased [Unknown]
  - Cerebral ventricle dilatation [Unknown]
  - Haemorrhoids [Not Recovered/Not Resolved]
  - Ulcer [Unknown]
  - Corynebacterium infection [Not Recovered/Not Resolved]
  - Ulna fracture [Recovered/Resolved]
  - Contusion [Recovering/Resolving]
  - Disease progression [Not Recovered/Not Resolved]
  - Anal fistula [Not Recovered/Not Resolved]
  - C-reactive protein increased [Not Recovered/Not Resolved]
  - Pancytopenia [Fatal]
  - Headache [Not Recovered/Not Resolved]
  - Fall [Unknown]
  - Condition aggravated [Recovered/Resolved]
  - Lung infiltration [Fatal]
  - Aplastic anaemia [Fatal]
  - Anal erosion [Not Recovered/Not Resolved]
  - Pyrexia [Not Recovered/Not Resolved]
  - Pain [Unknown]
  - Radius fracture [Recovered/Resolved]
  - Fracture [Not Recovered/Not Resolved]
  - Cardiomegaly [Unknown]
  - Pleural effusion [Fatal]
  - Haemorrhage [Unknown]
  - White blood cell count decreased [Not Recovered/Not Resolved]
  - Pulmonary mass [Unknown]
  - Staphylococcal infection [Not Recovered/Not Resolved]
  - Bacteroides infection [Not Recovered/Not Resolved]

NARRATIVE: CASE EVENT DATE: 20090316
